FAERS Safety Report 14013827 (Version 2)
Quarter: 2017Q4

REPORT INFORMATION
  Report Type: Spontaneous
  Country: PT (occurrence: PT)
  Receive Date: 20170926
  Receipt Date: 20171115
  Transmission Date: 20180321
  Serious: Yes (Life-Threatening, Hospitalization)
  Sender: FDA-Public Use
  Company Number: PT-FRESENIUS KABI-FK201707967

PATIENT
  Age: 69 Year
  Sex: Male

DRUGS (1)
  1. MANITOL 20% LABESFAL [Suspect]
     Active Substance: MANNITOL
     Indication: HYPERTENSION
     Route: 042
     Dates: start: 20170913, end: 20170916

REACTIONS (3)
  - Oliguria [Recovered/Resolved]
  - Drug ineffective [Recovered/Resolved]
  - Acute kidney injury [Recovered/Resolved]

NARRATIVE: CASE EVENT DATE: 20170913
